FAERS Safety Report 5477140-1 (Version None)
Quarter: 2007Q4

REPORT INFORMATION
  Report Type: 
  Country: None (occurrence: None)
  Receive Date: 20071004
  Receipt Date: 20071003
  Transmission Date: 20080405
  Serious: Yes (Hospitalization)
  Sender: FDA-Public Use
  Company Number: A0685501A

PATIENT
  Age: 66 Year
  Sex: Female

DRUGS (3)
  1. SENSODYNE-F [Suspect]
     Indication: SENSITIVITY OF TEETH
  2. TRILEPTAL [Concomitant]
  3. MELOXICAM [Concomitant]

REACTIONS (10)
  - CLOSTRIDIAL INFECTION [None]
  - DIARRHOEA [None]
  - DIARRHOEA HAEMORRHAGIC [None]
  - FEELING ABNORMAL [None]
  - HEADACHE [None]
  - LYMPHADENOPATHY [None]
  - MALIGNANT HYPERTENSION [None]
  - PETECHIAE [None]
  - TONGUE BLACK HAIRY [None]
  - VIRAL INFECTION [None]
